FAERS Safety Report 9477517 (Version 2)
Quarter: 2014Q1

REPORT INFORMATION
  Report Type: Spontaneous
  Country: IT (occurrence: IT)
  Receive Date: 20130827
  Receipt Date: 20140303
  Transmission Date: 20141002
  Serious: Yes (Hospitalization, Other)
  Sender: FDA-Public Use
  Company Number: IT-ACCORD-019067

PATIENT
  Age: 27 Year
  Sex: Male

DRUGS (3)
  1. QUETIAPINE [Suspect]
     Dosage: DRUG ABUSE FOR SELF-HARMING PURPOSES
     Route: 048
     Dates: start: 20130808, end: 20130808
  2. DEPAKINE CHRONO [Suspect]
     Dosage: DRUG ABUSE FOR SELF-HARMING PURPOSES
     Route: 048
     Dates: start: 20130808, end: 20130808
  3. FLUNOX [Suspect]
     Dosage: DRUG ABUSE FOR SELF-HARMING PURPOSES
     Route: 048
     Dates: start: 20130808, end: 20130808

REACTIONS (6)
  - Speech disorder [Recovering/Resolving]
  - Facial bones fracture [Recovering/Resolving]
  - Fall [Unknown]
  - Intentional self-injury [Recovering/Resolving]
  - Drug abuse [Unknown]
  - Sopor [Recovering/Resolving]
